FAERS Safety Report 14138479 (Version 1)
Quarter: 2017Q4

REPORT INFORMATION
  Report Type: Spontaneous
  Country: US (occurrence: US)
  Receive Date: 20171027
  Receipt Date: 20171027
  Transmission Date: 20180321
  Serious: No
  Sender: FDA-Public Use
  Company Number: US-ROCHE-1910434

PATIENT
  Age: 9 Year
  Sex: Female

DRUGS (1)
  1. TAMIFLU [Suspect]
     Active Substance: OSELTAMIVIR PHOSPHATE
     Indication: INFLUENZA
     Dosage: 60 MG CAPSULE TWICE DAILY FOR 5 DAYS ;ONGOING: NO
     Route: 048
     Dates: start: 20170320

REACTIONS (2)
  - Nightmare [Recovered/Resolved]
  - Ill-defined disorder [Recovered/Resolved]

NARRATIVE: CASE EVENT DATE: 20170320
